FAERS Safety Report 8023734-9 (Version None)
Quarter: 2012Q1

REPORT INFORMATION
  Report Type: 
  Country: None (occurrence: None)
  Receive Date: 20120103
  Receipt Date: 20120103
  Transmission Date: 20120608
  Serious: Yes (Life-Threatening, Hospitalization)
  Sender: FDA-Public Use
  Company Number: None

PATIENT
  Age: 64 Year
  Sex: Male
  Weight: 86.4 kg

DRUGS (2)
  1. CLOPIDOGREL [Suspect]
     Indication: SURGERY
     Dosage: 75 MG EVERY DAY PO
     Route: 048
     Dates: start: 20111011
  2. ASPIRIN [Suspect]
     Indication: SURGERY
     Dosage: 80 MG EVERY DAY PO
     Route: 048
     Dates: start: 20040226, end: 20111130

REACTIONS (2)
  - GASTRIC ULCER [None]
  - GASTRIC HAEMORRHAGE [None]
